FAERS Safety Report 7348278-9 (Version None)
Quarter: 2011Q1

REPORT INFORMATION
  Report Type: 
  Country: None (occurrence: None)
  Receive Date: 20110311
  Receipt Date: 20110308
  Transmission Date: 20110831
  Serious: Yes (Death, Hospitalization, Disabling)
  Sender: FDA-Public Use
  Company Number: CA-ABBOTT-10P-028-0675768-00

PATIENT
  Sex: Male
  Weight: 77.18 kg

DRUGS (1)
  1. LUPRON DEPOT [Suspect]
     Indication: PROSTATE CANCER
     Dates: start: 20070712, end: 20101022

REACTIONS (5)
  - BRAIN NEOPLASM [None]
  - PARESIS [None]
  - MALAISE [None]
  - DIZZINESS [None]
  - PNEUMONIA [None]
